FAERS Safety Report 8987062 (Version 1)
Quarter: 2012Q4

REPORT INFORMATION
  Report Type: 
  Country: DK (occurrence: DK)
  Receive Date: 20121226
  Receipt Date: 20121226
  Transmission Date: 20130627
  Serious: Yes (Hospitalization)
  Sender: FDA-Public Use
  Company Number: PHHY2012DK117195

PATIENT
  Age: 71 Year
  Sex: Male
  Weight: 70.5 kg

DRUGS (9)
  1. ACETYLSALICYLIC ACID [Suspect]
     Dosage: 75 mg, UNK
     Route: 065
     Dates: start: 20090122
  2. CLOPIDOGREL BISULFATE [Suspect]
     Dosage: 75 mg, UNK
     Route: 065
     Dates: start: 20090122, end: 20090323
  3. SIMVASTATIN [Concomitant]
     Dates: start: 20090122
  4. PARACETAMOL [Concomitant]
     Dates: start: 200711
  5. LANSOPRAZOLE [Concomitant]
     Dates: start: 200711
  6. GABAPENTIN [Concomitant]
     Dates: start: 200711
  7. MAGNESIUM OXIDE [Concomitant]
     Dates: start: 200711
  8. METOPROLOL TARTRATE [Concomitant]
     Dates: start: 20090123
  9. DALCETRAPIB [Concomitant]
     Route: 048
     Dates: start: 20090318

REACTIONS (2)
  - Haematuria [Recovered/Resolved]
  - Haematoma [Unknown]
